FAERS Safety Report 8294912-9 (Version None)
Quarter: 2012Q2

REPORT INFORMATION
  Report Type: 
  Country: None (occurrence: None)
  Receive Date: 20120418
  Receipt Date: 20120409
  Transmission Date: 20120825
  Serious: Yes (Other)
  Sender: FDA-Public Use
  Company Number: US-BAYER-2012-035116

PATIENT
  Age: 19 Year
  Weight: 91.61 kg

DRUGS (1)
  1. ASPIRIN [Suspect]
     Route: 048

REACTIONS (3)
  - DEAFNESS TRANSITORY [None]
  - VOMITING [None]
  - GAIT DISTURBANCE [None]
